FAERS Safety Report 10511115 (Version 1)
Quarter: 2014Q4

REPORT INFORMATION
  Report Type: Spontaneous
  Country: US (occurrence: None)
  Receive Date: 20141009
  Receipt Date: 20141009
  Transmission Date: 20150528
  Serious: No
  Sender: FDA-Public Use
  Company Number: None

PATIENT
  Age: 62 Year
  Sex: Female

DRUGS (1)
  1. COPAXONE [Suspect]
     Active Substance: GLATIRAMER ACETATE
     Indication: MULTIPLE SCLEROSIS
     Dosage: 40MG  TIW  SQ
     Route: 058
     Dates: start: 20110519

REACTIONS (4)
  - Flushing [None]
  - Injection site swelling [None]
  - Cardiac disorder [None]
  - Injection site bruising [None]
